FAERS Safety Report 8482980-0 (Version None)
Quarter: 2012Q2

REPORT INFORMATION
  Report Type: 
  Country: None (occurrence: None)
  Receive Date: 20120625
  Receipt Date: 20120613
  Transmission Date: 20120825
  Serious: Yes (Hospitalization, Other)
  Sender: FDA-Public Use
  Company Number: 2012SP032654

PATIENT
  Age: 83 Year
  Sex: Female

DRUGS (4)
  1. MARCUMAR [Concomitant]
  2. SYCREST (ASENAPINE /05706901/) [Suspect]
     Indication: PRODUCT USED FOR UNKNOWN INDICATION
     Dosage: 5 MG, QD, PO
     Route: 048
     Dates: start: 20110901, end: 20110906
  3. SEROQUEL [Concomitant]
  4. RAMIPRIL [Concomitant]

REACTIONS (2)
  - ORAL DYSAESTHESIA [None]
  - HYPERAESTHESIA [None]
